FAERS Safety Report 10037434 (Version 3)
Quarter: 2014Q2

REPORT INFORMATION
  Report Type: Spontaneous
  Country: JP (occurrence: None)
  Receive Date: 20140324
  Receipt Date: 20140408
  Transmission Date: 20141212
  Serious: Yes (Hospitalization)
  Sender: FDA-Public Use
  Company Number: TPU2014-00065

PATIENT
  Age: 69 Year
  Sex: Male
  Weight: 60 kg

DRUGS (12)
  1. LIDOCAINE PATCH [Suspect]
     Indication: POST HERPETIC NEURALGIA
     Dosage: 3 PLASTER
     Route: 061
     Dates: start: 20140307
  2. NEUROTROPIN (RABBIT VACCINIA EXTRACT) (TABLETS) [Concomitant]
  3. TSUMURA OUREN GEDOKU TO (COPTIS TRIFOLIA W/HERBAL EXTRACT NOS/ PHELLODE) (GRANULES) [Concomitant]
  4. TSUMURA KEISHI BUKURYO GAN (HERBAL PREPARATION) (GRANULES) [Concomitant]
  5. KETOCONAZOLE CREAM 2 % (KETOCONAZOLE) (CREAM) [Concomitant]
  6. TERA CORTRIL OINTMENT (HYDROCORTISON MED TERRAMYCIN) (OINTMENT) [Concomitant]
  7. MINOPEN (MINOCYCLINE) (TABLETS) [Concomitant]
  8. BISOPROLOL FUMARATE (BISOPROLOL FUMARATE) (TABLETS) [Concomitant]
  9. MECOBALAMIN (MECOBALAMIN) (TABLETS) [Concomitant]
  10. LOXONIN (LOXOPROFEN SODIUM) (TABLETS) [Concomitant]
  11. REBAMIPIDE (REBAMIPIDE) (TABLETS) [Concomitant]
  12. FAMOTIDINE (FAMOTIDINE) (TABLETS) [Concomitant]

REACTIONS (6)
  - Diverticulum intestinal haemorrhagic [None]
  - Faeces soft [None]
  - Abdominal pain [None]
  - Nausea [None]
  - Anaemia [None]
  - Haematochezia [None]
